FAERS Safety Report 4651970-8 (Version None)
Quarter: 2005Q2

REPORT INFORMATION
  Report Type: 
  Country: None (occurrence: None)
  Receive Date: 20050502
  Receipt Date: 20050502
  Transmission Date: 20051028
  Serious: Yes (Hospitalization, Other)
  Sender: FDA-Public Use
  Company Number: None

PATIENT
  Age: 35 Year
  Sex: Male

DRUGS (3)
  1. AFRIN [Suspect]
     Indication: SEASONAL ALLERGY
     Dosage: UNKNOWN NAS AER SPRAY
     Route: 045
     Dates: start: 20020901, end: 20020901
  2. SUDAFED 12 HOUR [Suspect]
     Indication: SEASONAL ALLERGY
     Dates: start: 20020901, end: 20020901
  3. ARMOUR THYROID TABLETS [Suspect]
     Indication: HYPOTHYROIDISM
     Dosage: 60 MG QD ORAL
     Route: 048
     Dates: start: 20020201, end: 20020901

REACTIONS (7)
  - AGITATION [None]
  - AMNESIA [None]
  - CONFUSIONAL STATE [None]
  - LEGAL PROBLEM [None]
  - PHYSICAL ASSAULT [None]
  - SPEECH DISORDER [None]
  - THINKING ABNORMAL [None]
